FAERS Safety Report 5341627-2 (Version None)
Quarter: 2007Q2

REPORT INFORMATION
  Report Type: 
  Country: None (occurrence: None)
  Receive Date: 20070530
  Receipt Date: 20070518
  Transmission Date: 20071010
  Serious: Yes (Other)
  Sender: FDA-Public Use
  Company Number: A-CH2007-14606

PATIENT
  Age: 9 Year
  Sex: Male
  Weight: 34 kg

DRUGS (2)
  1. ZAVESCA [Suspect]
     Indication: TAY-SACHS DISEASE
     Dosage: 100 MG, TID, ORAL
     Route: 048
     Dates: start: 20060601, end: 20070101
  2. ANTIEPILEPTICS [Concomitant]

REACTIONS (3)
  - GASTROSTOMY [None]
  - NEUROLOGICAL SYMPTOM [None]
  - WEIGHT DECREASED [None]
